FAERS Safety Report 4802391-6 (Version None)
Quarter: 2005Q4

REPORT INFORMATION
  Report Type: 
  Country: None (occurrence: None)
  Receive Date: 20051013
  Receipt Date: 20050822
  Transmission Date: 20060501
  Serious: Yes (Other)
  Sender: FDA-Public Use
  Company Number: 2005119521

PATIENT
  Age: 84 Year
  Sex: Female
  Weight: 47.6277 kg

DRUGS (5)
  1. COLESTID [Suspect]
     Indication: DIARRHOEA
     Dosage: 5 GRAM ( 5 GRAM, 1 IN 1 D), ORAL
     Route: 048
  2. MULTIVITAMINS (MULITIVITAMINS) [Concomitant]
  3. VITAMIN B6 (VITAMIN B6) [Concomitant]
  4. FOLIC ACID [Concomitant]
  5. CALCIUM (CALCIUM) [Concomitant]

REACTIONS (12)
  - BLOOD COUNT ABNORMAL [None]
  - CONDITION AGGRAVATED [None]
  - DIARRHOEA [None]
  - DRUG INEFFECTIVE [None]
  - MEMORY IMPAIRMENT [None]
  - PAIN IN EXTREMITY [None]
  - PHARMACEUTICAL PRODUCT COMPLAINT [None]
  - POOR PERIPHERAL CIRCULATION [None]
  - SPINAL DISORDER [None]
  - THYROID DISORDER [None]
  - TONGUE COATED [None]
  - VOMITING [None]
